FAERS Safety Report 4570160-0 (Version None)
Quarter: 2005Q1

REPORT INFORMATION
  Report Type: 
  Country: None (occurrence: None)
  Receive Date: 20050201
  Receipt Date: 20050125
  Transmission Date: 20050727
  Serious: Yes (Other)
  Sender: FDA-Public Use
  Company Number: 04-12-1706

PATIENT
  Age: 32 Year
  Sex: Female
  Weight: 72.5755 kg

DRUGS (4)
  1. CLOZAPINE [Suspect]
     Indication: BIPOLAR DISORDER
     Dosage: 75MG QD ORAL
     Route: 048
     Dates: start: 20041101
  2. DEPAKOTE [Suspect]
     Indication: BIPOLAR DISORDER
  3. KLONOPIN [Suspect]
     Dates: end: 20041215
  4. PROZAC [Concomitant]

REACTIONS (8)
  - ANAEMIA MACROCYTIC [None]
  - EAR PAIN [None]
  - MALAISE [None]
  - PAIN [None]
  - PHARYNGITIS [None]
  - PRODUCTIVE COUGH [None]
  - SEDATION [None]
  - TACHYCARDIA [None]
